FAERS Safety Report 6780869-6 (Version None)
Quarter: 2010Q2

REPORT INFORMATION
  Report Type: 
  Country: None (occurrence: None)
  Receive Date: 20100621
  Receipt Date: 20100610
  Transmission Date: 20101027
  Serious: Yes (Disabling, Other)
  Sender: FDA-Public Use
  Company Number: SE-JNJFOC-20100603508

PATIENT
  Age: 22 Year
  Sex: Male

DRUGS (4)
  1. REMICADE [Suspect]
     Indication: CROHN'S DISEASE
     Route: 042
  2. ANTIBIOTIC [Concomitant]
  3. METOJECT [Concomitant]
  4. CORTISONE [Concomitant]

REACTIONS (1)
  - INCONTINENCE [None]
